FAERS Safety Report 7398155-2 (Version None)
Quarter: 2011Q2

REPORT INFORMATION
  Report Type: 
  Country: None (occurrence: None)
  Receive Date: 20110406
  Receipt Date: 20110325
  Transmission Date: 20111010
  Serious: Yes (Hospitalization)
  Sender: FDA-Public Use
  Company Number: PHHO2010FR18168

PATIENT
  Sex: Male
  Weight: 93 kg

DRUGS (23)
  1. ASPEGIC 325 [Concomitant]
  2. NEORAL [Suspect]
     Indication: RENAL TRANSPLANT
     Dosage: 300 MG, DAILY
     Route: 048
     Dates: start: 20101031
  3. ROVALCYTE [Concomitant]
  4. NOVORAPID [Concomitant]
  5. XATRAL                                  /FRA/ [Concomitant]
  6. PREVISCAN [Concomitant]
  7. CORTANCYL [Suspect]
     Dosage: 10 MG, DAILY
     Route: 048
     Dates: start: 20101031
  8. CELLCEPT [Concomitant]
     Indication: RENAL TRANSPLANT
     Dosage: 30 G, DAILY
     Dates: start: 20101028
  9. AMLODIPINE BESYLATE [Concomitant]
  10. PHOSPHONEUROS [Concomitant]
  11. DUPHALAC [Concomitant]
  12. LANTUS [Concomitant]
  13. EUPANTOL [Concomitant]
  14. SOTALOL HCL [Concomitant]
  15. BACTRIM [Concomitant]
  16. LASIX [Concomitant]
  17. STILNOX [Concomitant]
  18. TAHOR [Concomitant]
  19. NEORAL [Suspect]
     Dosage: 350 MG, UNK
     Route: 048
  20. KARDEGIC [Concomitant]
  21. FORTUM [Concomitant]
  22. EPREX [Concomitant]
  23. DIFFU K [Concomitant]

REACTIONS (4)
  - PSEUDOMONAL SEPSIS [None]
  - PSEUDOMONAS INFECTION [None]
  - ABDOMINAL ABSCESS [None]
  - WOUND DEHISCENCE [None]
